FAERS Safety Report 6394051-8 (Version None)
Quarter: 2009Q4

REPORT INFORMATION
  Report Type: 
  Country: None (occurrence: None)
  Receive Date: 20091008
  Receipt Date: 20091005
  Transmission Date: 20100525
  Serious: Yes (Hospitalization)
  Sender: FDA-Public Use
  Company Number: PHHO2009DE08270

PATIENT
  Sex: Female
  Weight: 59.5 kg

DRUGS (8)
  1. ZOLEDRONIC ACID [Suspect]
     Indication: BREAST CANCER
     Dosage: 4 MG, EVERY 3 MONTHS FOR 2 YEARS
     Route: 042
     Dates: start: 20070321
  2. FLUOROURACIL [Suspect]
  3. EPIRUBICIN [Suspect]
  4. CYCLOPHOSPHAMIDE [Suspect]
  5. DOCETAXEL [Suspect]
  6. ARIMIDEX [Concomitant]
     Dosage: UNK
     Route: 048
     Dates: start: 20070201
  7. CALCIUM [Concomitant]
  8. VITAMIN D [Concomitant]

REACTIONS (2)
  - BONE PAIN [None]
  - GENERAL PHYSICAL HEALTH DETERIORATION [None]
